FAERS Safety Report 19285543 (Version 1)
Quarter: 2021Q2

REPORT INFORMATION
  Report Type: Spontaneous
  Country: US (occurrence: US)
  Receive Date: 20210521
  Receipt Date: 20210521
  Transmission Date: 20210717
  Serious: No
  Sender: FDA-Public Use
  Company Number: US-TEVA-2021-US-1905631

PATIENT
  Age: 33 Year
  Sex: Female

DRUGS (2)
  1. AJOVY [Suspect]
     Active Substance: FREMANEZUMAB-VFRM
     Indication: MIGRAINE WITHOUT AURA
     Route: 065
     Dates: start: 20201028
  2. AJOVY [Suspect]
     Active Substance: FREMANEZUMAB-VFRM
     Dosage: AJOVY WAS LAST RECEIVED BY THE PATIENT ON 02?APR?2021
     Route: 065
     Dates: start: 20210402

REACTIONS (3)
  - Urticaria [Unknown]
  - Adverse drug reaction [Unknown]
  - Pruritus [Unknown]
